FAERS Safety Report 6568967-3 (Version None)
Quarter: 2010Q1

REPORT INFORMATION
  Report Type: 
  Country: None (occurrence: None)
  Receive Date: 20100201
  Receipt Date: 20100201
  Transmission Date: 20100710
  Serious: No
  Sender: FDA-Public Use
  Company Number: None

PATIENT
  Age: 91 Year
  Sex: Female

DRUGS (1)
  1. AVASTIN [Suspect]
     Indication: MACULAR DEGENERATION
     Dosage: 1250 MCG AS NEEDED INTRA-VITREAL EYE INJECTION OD
     Dates: start: 20090805

REACTIONS (2)
  - INJECTION SITE DISCOMFORT [None]
  - INJECTION SITE PAIN [None]
